FAERS Safety Report 21382477 (Version 1)
Quarter: 2022Q3

REPORT INFORMATION
  Report Type: Spontaneous
  Country: GB (occurrence: ES)
  Receive Date: 20220927
  Receipt Date: 20220927
  Transmission Date: 20221026
  Serious: Yes (Other)
  Sender: FDA-Public Use
  Company Number: None

PATIENT

DRUGS (6)
  1. LATUDA [Suspect]
     Active Substance: LURASIDONE HYDROCHLORIDE
     Indication: Psychotic disorder
     Dosage: 37 MG, QD (1 TABLET DIE)
     Route: 048
     Dates: start: 20220331, end: 20220712
  2. DULOXETINE [Suspect]
     Active Substance: DULOXETINE
     Indication: Product used for unknown indication
     Dosage: 90 MG, QD
     Route: 065
     Dates: start: 20220524
  3. FAMOTIDINA [Concomitant]
     Indication: Gastrooesophageal reflux disease
     Dosage: 20 MG, BID
     Route: 065
     Dates: start: 20210927
  4. LEVOSULPIRIDA [Concomitant]
     Indication: Product used for unknown indication
     Dosage: 25 MG, QD
     Route: 050
     Dates: start: 20210927
  5. FUROSEMIDE [Concomitant]
     Active Substance: FUROSEMIDE
     Indication: Product used for unknown indication
     Dosage: 40 MG, BID
     Route: 050
     Dates: start: 20200504
  6. LYRICA [Concomitant]
     Active Substance: PREGABALIN
     Indication: Schizophrenia
     Dosage: 75 MG, TID
     Route: 050
     Dates: start: 20130521

REACTIONS (9)
  - Chest pain [Recovering/Resolving]
  - Speech disorder [Recovering/Resolving]
  - Musculoskeletal pain [Recovering/Resolving]
  - Gait disturbance [Recovering/Resolving]
  - Hyperhidrosis [Recovering/Resolving]
  - Muscle rigidity [Recovering/Resolving]
  - Weight increased [Recovering/Resolving]
  - Dry mouth [Recovering/Resolving]
  - Off label use [Recovering/Resolving]

NARRATIVE: CASE EVENT DATE: 20220712
